FAERS Safety Report 5104332-3 (Version None)
Quarter: 2006Q3

REPORT INFORMATION
  Report Type: 
  Country: None (occurrence: None)
  Receive Date: 20060912
  Receipt Date: 20060912
  Transmission Date: 20061208
  Serious: Yes (Death, Hospitalization, Disabling)
  Sender: FDA-Public Use
  Company Number: None

PATIENT
  Age: 72 Year
  Sex: Female
  Weight: 67.1324 kg

DRUGS (3)
  1. CLOPIDOGREL [Suspect]
     Indication: CORONARY ANGIOPLASTY
     Dosage: 75MG   PO
     Route: 048
     Dates: start: 20060817, end: 20060819
  2. CLOPIDOGREL [Suspect]
     Indication: CORONARY ARTERIAL STENT INSERTION
     Dosage: 75MG   PO
     Route: 048
     Dates: start: 20060817, end: 20060819
  3. CLOPIDOGREL [Suspect]
     Indication: MYOCARDIAL INFARCTION
     Dosage: 75MG   PO
     Route: 048
     Dates: start: 20060817, end: 20060819

REACTIONS (5)
  - DRUG EFFECT DECREASED [None]
  - MYOCARDIAL INFARCTION [None]
  - PHARMACEUTICAL PRODUCT COMPLAINT [None]
  - THERAPEUTIC RESPONSE UNEXPECTED WITH DRUG SUBSTITUTION [None]
  - THROMBOSIS IN DEVICE [None]
